FAERS Safety Report 9365111 (Version 2)
Quarter: 2013Q3

REPORT INFORMATION
  Report Type: Report from Study
  Country: BR (occurrence: BR)
  Receive Date: 20130624
  Receipt Date: 20130731
  Transmission Date: 20140515
  Serious: Yes (Other)
  Sender: FDA-Public Use
  Company Number: PHHY2013BR064270

PATIENT
  Sex: Female
  Weight: 71 kg

DRUGS (4)
  1. SANDOSTATIN LAR [Suspect]
     Indication: ACROMEGALY
     Dosage: 30 MG, EVERY 28 DAYS
     Dates: start: 201008
  2. DOSTINEX [Concomitant]
     Indication: ACROMEGALY
     Dosage: 1 DF, UNK
     Route: 048
     Dates: start: 201008
  3. VITAMIN D [Concomitant]
     Indication: ACROMEGALY
     Dosage: 10 DRP, DAILY
  4. VITAMIN B3 [Concomitant]
     Dosage: UNK UKN, UNK
     Route: 048
     Dates: start: 2011

REACTIONS (6)
  - Dengue fever [Recovering/Resolving]
  - Influenza [Recovering/Resolving]
  - Pain [Recovering/Resolving]
  - Headache [Recovering/Resolving]
  - Pyrexia [Recovering/Resolving]
  - Platelet count decreased [Recovered/Resolved]
